FAERS Safety Report 11196104 (Version 1)
Quarter: 2015Q2

REPORT INFORMATION
  Report Type: Spontaneous
  Country: US (occurrence: None)
  Receive Date: 20150616
  Receipt Date: 20150616
  Transmission Date: 20150821
  Serious: No
  Sender: FDA-Public Use
  Company Number: None

PATIENT
  Sex: Female

DRUGS (2)
  1. MAKENA [Suspect]
     Active Substance: HYDROXYPROGESTERONE CAPROATE
     Indication: PREGNANCY
     Dosage: MAKENA 1ML (250 MG) QWEEK IM
     Route: 030
     Dates: start: 20150501
  2. MAKENA [Suspect]
     Active Substance: HYDROXYPROGESTERONE CAPROATE
     Indication: PREMATURE LABOUR
     Dosage: MAKENA 1ML (250 MG) QWEEK IM
     Route: 030
     Dates: start: 20150501

REACTIONS (3)
  - Wrong technique in drug usage process [None]
  - Injection site swelling [None]
  - Injection site pain [None]
